FAERS Safety Report 5288283-X (Version None)
Quarter: 2007Q1

REPORT INFORMATION
  Report Type: 
  Country: None (occurrence: None)
  Receive Date: 20070330
  Receipt Date: 20070321
  Transmission Date: 20070707
  Serious: Yes (Life-Threatening, Hospitalization)
  Sender: FDA-Public Use
  Company Number: 2006-02848

PATIENT
  Age: 73 Year
  Sex: Male

DRUGS (7)
  1. VELCADE [Suspect]
     Indication: MULTIPLE MYELOMA
     Dosage: 1.30 MG/M2, INTRAVENOUS
     Route: 042
     Dates: start: 20061023, end: 20061026
  2. MELPHALAN(MELPHALAN) VIAL [Suspect]
     Indication: MULTIPLE MYELOMA
     Dosage: 7.50 MG/M2, INTRAVENOUS
     Route: 042
     Dates: start: 20061024, end: 20061026
  3. PAMIDRONATE DISODIUM [Concomitant]
  4. SULFAMETHOXAZOLE + TRIMETHOPRIM [Concomitant]
  5. ALLOPURINOL [Concomitant]
  6. PROPRANOLOL [Concomitant]
  7. ASPIRIN [Concomitant]

REACTIONS (8)
  - BLOOD CULTURE POSITIVE [None]
  - HAEMODIALYSIS [None]
  - HYPOTENSION [None]
  - RENAL FAILURE [None]
  - RENAL TUBULAR NECROSIS [None]
  - SEPSIS [None]
  - STAPHYLOCOCCAL INFECTION [None]
  - TUMOUR LYSIS SYNDROME [None]
